FAERS Safety Report 24040798 (Version 1)
Quarter: 2024Q3

REPORT INFORMATION
  Report Type: Spontaneous
  Country: US (occurrence: US)
  Receive Date: 20240702
  Receipt Date: 20240702
  Transmission Date: 20241016
  Serious: No
  Sender: MYLAN
  Company Number: US-MYLANLABS-2024M1060503

PATIENT
  Age: 60 Year
  Sex: Female
  Weight: 54.43 kg

DRUGS (1)
  1. ESTRADIOL TRANSDERMAL SYSTEM [Suspect]
     Active Substance: ESTRADIOL
     Indication: Product used for unknown indication
     Dosage: 0.05 MILLIGRAM, QD (TWICE WEEKLY)
     Route: 062

REACTIONS (2)
  - Application site erythema [Unknown]
  - Application site irritation [Unknown]

NARRATIVE: CASE EVENT DATE: 20240601
